FAERS Safety Report 7641186-5 (Version None)
Quarter: 2011Q3

REPORT INFORMATION
  Report Type: 
  Country: None (occurrence: None)
  Receive Date: 20110728
  Receipt Date: 20110718
  Transmission Date: 20111222
  Serious: Yes (Hospitalization)
  Sender: FDA-Public Use
  Company Number: PHFR2011GB02319

PATIENT
  Sex: Male

DRUGS (2)
  1. CLOZAPINE [Suspect]
     Indication: SCHIZOPHRENIA
     Route: 048
     Dates: start: 20110330, end: 20110403
  2. CLOZAPINE [Suspect]
     Dosage: UNK
     Route: 048

REACTIONS (8)
  - BALANCE DISORDER [None]
  - PNEUMONIA [None]
  - HYPOTENSION [None]
  - SYNCOPE [None]
  - EOSINOPHIL COUNT INCREASED [None]
  - BLOOD PRESSURE FLUCTUATION [None]
  - MALAISE [None]
  - LETHARGY [None]
